FAERS Safety Report 9958608 (Version 1)
Quarter: 2014Q1

REPORT INFORMATION
  Report Type: Spontaneous
  Country: US (occurrence: None)
  Receive Date: 20140124
  Receipt Date: 20140124
  Transmission Date: 20141002
  Serious: Yes (Hospitalization, Other)
  Sender: FDA-Public Use
  Company Number: 2011AP000633

PATIENT
  Age: 67 Year
  Sex: Female

DRUGS (8)
  1. OXCARBAZEPINE TABLETS, 300 MG [Suspect]
     Indication: CONVULSION
  2. TOPIRAMATE [Suspect]
     Indication: CONVULSION
     Dosage: 100 MG; AM
  3. PHENYTOIN [Suspect]
     Indication: CONVULSION
     Dosage: 200 MG; AM
  4. QUETIAPINE [Concomitant]
  5. CLONAZEPAM [Concomitant]
  6. VALPROIC ACID [Concomitant]
  7. CARBAMAZEPINE [Concomitant]
  8. LITHIUM [Concomitant]

REACTIONS (3)
  - Drug interaction [None]
  - Toxicity to various agents [None]
  - Ataxia [None]
